FAERS Safety Report 13228276 (Version 1)
Quarter: 2017Q1

REPORT INFORMATION
  Report Type: Spontaneous
  Country: US (occurrence: US)
  Receive Date: 20170213
  Receipt Date: 20170213
  Transmission Date: 20170428
  Serious: No
  Sender: FDA-Public Use
  Company Number: US-ROCHE-1836990

PATIENT
  Age: 27 Year
  Sex: Female
  Weight: 100.79 kg

DRUGS (5)
  1. XOLAIR [Suspect]
     Active Substance: OMALIZUMAB
     Indication: ASTHMA
     Route: 058
     Dates: start: 20160129, end: 20160919
  2. MONTELUKAST [Concomitant]
     Active Substance: MONTELUKAST SODIUM
  3. ADVAIR HFA [Concomitant]
     Active Substance: FLUTICASONE PROPIONATE\SALMETEROL XINAFOATE
  4. SPIRIVA [Concomitant]
     Active Substance: TIOTROPIUM BROMIDE MONOHYDRATE
  5. ALBUTEROL INHALATION SOLUTION [Concomitant]
     Active Substance: ALBUTEROL

REACTIONS (2)
  - Fatigue [Unknown]
  - Nausea [Recovered/Resolved]

NARRATIVE: CASE EVENT DATE: 20160808
